FAERS Safety Report 7482571-4 (Version None)
Quarter: 2011Q2

REPORT INFORMATION
  Report Type: 
  Country: None (occurrence: None)
  Receive Date: 20110516
  Receipt Date: 20110506
  Transmission Date: 20111010
  Serious: Yes (Life-Threatening, Hospitalization, Disabling)
  Sender: FDA-Public Use
  Company Number: GB-TEVA-281180ISR

PATIENT
  Age: 87 Year
  Sex: Male

DRUGS (2)
  1. SIMVASTATIN [Suspect]
     Indication: CARDIAC FAILURE
     Dosage: 960 MILLIGRAM;
     Route: 048
  2. SIMVASTATIN [Suspect]
     Indication: MYOCARDIAL ISCHAEMIA

REACTIONS (4)
  - COUGH [None]
  - WEIGHT DECREASED [None]
  - PULMONARY FIBROSIS [None]
  - DYSPNOEA [None]
